FAERS Safety Report 7251902-2 (Version None)
Quarter: 2011Q1

REPORT INFORMATION
  Report Type: 
  Country: None (occurrence: None)
  Receive Date: 20110128
  Receipt Date: 20110126
  Transmission Date: 20110831
  Serious: Yes (Other)
  Sender: FDA-Public Use
  Company Number: US-AMGEN-USASP2011005053

PATIENT
  Sex: Female

DRUGS (2)
  1. PREDNISONE [Concomitant]
     Indication: IDIOPATHIC THROMBOCYTOPENIC PURPURA
  2. NPLATE [Suspect]
     Indication: IDIOPATHIC THROMBOCYTOPENIC PURPURA
     Dosage: UNK
     Dates: start: 20101015

REACTIONS (6)
  - ARTHRALGIA [None]
  - DIZZINESS [None]
  - HEADACHE [None]
  - PLATELET COUNT INCREASED [None]
  - ADVERSE DRUG REACTION [None]
  - MYALGIA [None]
